FAERS Safety Report 20458874 (Version 1)
Quarter: 2022Q1

REPORT INFORMATION
  Report Type: Spontaneous
  Country: US (occurrence: US)
  Receive Date: 20220211
  Receipt Date: 20220211
  Transmission Date: 20220423
  Serious: No
  Sender: FDA-Public Use
  Company Number: US-TARO-2021TAR00906

PATIENT

DRUGS (2)
  1. KETOCONAZOLE [Suspect]
     Active Substance: KETOCONAZOLE
     Indication: Hyperkeratosis
     Dosage: UNK, BID, APPLIED ON FOOT
     Route: 061
  2. KETOCONAZOLE [Suspect]
     Active Substance: KETOCONAZOLE
     Dosage: UNK, BID, APPLIED ON FOOT
     Route: 061

REACTIONS (3)
  - Skin laceration [Recovered/Resolved]
  - Product use in unapproved indication [Unknown]
  - Product packaging issue [Unknown]
